FAERS Safety Report 5588029-1 (Version None)
Quarter: 2008Q1

REPORT INFORMATION
  Report Type: 
  Country: None (occurrence: None)
  Receive Date: 20080111
  Receipt Date: 20071228
  Transmission Date: 20080703
  Serious: Yes (Other)
  Sender: FDA-Public Use
  Company Number: US-PFIZER INC-2008000295

PATIENT
  Age: 40 Year
  Sex: Female

DRUGS (1)
  1. DILANTIN [Suspect]
     Indication: EPILEPSY

REACTIONS (6)
  - AMNESIA [None]
  - ARTERIOVENOUS MALFORMATION [None]
  - COGNITIVE DISORDER [None]
  - DEAFNESS [None]
  - MENINGIOMA [None]
  - VISUAL FIELD DEFECT [None]
